FAERS Safety Report 5448256-0 (Version None)
Quarter: 2007Q3

REPORT INFORMATION
  Report Type: 
  Country: None (occurrence: None)
  Receive Date: 20070911
  Receipt Date: 20070904
  Transmission Date: 20080115
  Serious: Yes (Hospitalization, Other)
  Sender: FDA-Public Use
  Company Number: PHBS2007IE02063

PATIENT
  Age: 40 Year
  Sex: Male

DRUGS (22)
  1. ETOPOSIDE [Suspect]
     Indication: TERATOMA
     Dosage: 240 MG/D
     Route: 042
     Dates: start: 20061106, end: 20061108
  2. ETOPOSIDE [Suspect]
     Dosage: 240 MG/D
     Route: 042
     Dates: start: 20061127, end: 20061129
  3. ETOPOSIDE [Suspect]
     Dosage: 240 MG/D
     Route: 042
     Dates: start: 20061219, end: 20061221
  4. ETOPOSIDE [Suspect]
     Dosage: 240 MG/D
     Route: 042
     Dates: start: 20070129, end: 20070129
  5. ETOPOSIDE [Suspect]
     Dosage: 148 MG/D
     Route: 042
     Dates: start: 20070130, end: 20070131
  6. SANDIMMUNE [Suspect]
     Indication: RENAL TRANSPLANT
     Dosage: UNK, UNK
     Route: 048
     Dates: start: 19950101
  7. CARBOPLATIN [Suspect]
     Dosage: 440 MG/D
     Route: 042
     Dates: start: 20061106, end: 20061106
  8. CARBOPLATIN [Suspect]
     Dosage: 320 MG/D
     Route: 042
     Dates: start: 20061127, end: 20061127
  9. CARBOPLATIN [Suspect]
     Dosage: 440 MG/D
     Route: 042
     Dates: start: 20061219, end: 20061219
  10. CARBOPLATIN [Suspect]
     Dosage: 350 MG/D
     Route: 042
     Dates: start: 20070129, end: 20070129
  11. ALLOPURINOL [Concomitant]
     Dosage: 300 MG
  12. COLCHICINE [Concomitant]
     Dosage: 500 MG ALTERNATE DAYS
  13. PREDNISOLONE [Concomitant]
     Dosage: 5 MG, QD
  14. NIFEDIPINE [Concomitant]
     Dosage: 10 MG, BID
  15. OMEPRAZOLE [Concomitant]
     Dosage: 20 MG AT NIGHT
  16. ATORVASTATIN CALCIUM [Concomitant]
     Dosage: 20MG AT NIGHT
  17. FRUSEMIDE [Concomitant]
     Dosage: 20 MG, QD
  18. EMULSIFYING OINTMENT [Concomitant]
  19. PROTOPIC [Concomitant]
     Dosage: 0.1%
     Route: 061
  20. TYFLEX [Concomitant]
     Dosage: UNK, PRN
  21. GALFER [Concomitant]
     Dosage: UNK, BID
  22. EMULAVE [Concomitant]

REACTIONS (7)
  - BONE MARROW FAILURE [None]
  - BONE MARROW TOXICITY [None]
  - METASTASES TO LUNG [None]
  - NEUTROPENIA [None]
  - NEUTROPENIC SEPSIS [None]
  - RENAL IMPAIRMENT [None]
  - TERATOMA [None]
